FAERS Safety Report 6342502-7 (Version None)
Quarter: 2009Q3

REPORT INFORMATION
  Report Type: 
  Country: None (occurrence: None)
  Receive Date: 20090908
  Receipt Date: 20060206
  Transmission Date: 20100115
  Serious: No
  Sender: FDA-Public Use
  Company Number: NL-ROCHE-400473

PATIENT
  Sex: Male
  Weight: 3.9 kg

DRUGS (3)
  1. TAMIFLU [Suspect]
     Indication: INFLUENZA
     Dosage: DOSAGE REGIMEN REPORTED AS 2 X 1
     Dates: start: 20050204, end: 20050206
  2. BISOLVON [Concomitant]
     Dosage: DOSAGE REGIMEN REPORTED AS 2 X 1
     Dates: start: 20050204, end: 20050204
  3. FOLIC ACID [Concomitant]
     Dosage: DOSAGE REGIMEN REPORTED AS 1 X 1

REACTIONS (6)
  - DRUG EXPOSURE DURING PREGNANCY [None]
  - INDUCED LABOUR [None]
  - NORMAL NEWBORN [None]
  - POSTMATURE BABY [None]
  - POSTPARTUM HAEMORRHAGE [None]
  - RETAINED PLACENTA OR MEMBRANES [None]
